FAERS Safety Report 17166338 (Version 2)
Quarter: 2019Q4

REPORT INFORMATION
  Report Type: Spontaneous
  Country: US (occurrence: US)
  Receive Date: 20191217
  Receipt Date: 20191226
  Transmission Date: 20200122
  Serious: Yes (Death, Life-Threatening, Hospitalization, Other)
  Sender: FDA-Public Use
  Company Number: US-UNITED THERAPEUTICS-UNT-2019-020851

PATIENT
  Age: 23 Year
  Sex: Male

DRUGS (8)
  1. ATENOLOL. [Concomitant]
     Active Substance: ATENOLOL
     Indication: PRODUCT USED FOR UNKNOWN INDICATION
     Route: 065
  2. ASPIRINE [Concomitant]
     Active Substance: ASPIRIN
     Indication: PRODUCT USED FOR UNKNOWN INDICATION
     Route: 065
  3. REMODULIN [Suspect]
     Active Substance: TREPROSTINIL
     Indication: MALIGNANT ATROPHIC PAPULOSIS
     Dosage: UNK UNK, CONTINUING
     Route: 058
     Dates: start: 2010, end: 201409
  4. ECULIZUMAB [Suspect]
     Active Substance: ECULIZUMAB
     Indication: GASTROINTESTINAL DISORDER
  5. PROPAFENONE. [Concomitant]
     Active Substance: PROPAFENONE
     Indication: PRODUCT USED FOR UNKNOWN INDICATION
     Route: 065
  6. ORENITRAM [Suspect]
     Active Substance: TREPROSTINIL
     Indication: MALIGNANT ATROPHIC PAPULOSIS
     Dosage: UNK
     Route: 048
     Dates: start: 201409
  7. ECULIZUMAB [Suspect]
     Active Substance: ECULIZUMAB
     Indication: SKIN DISORDER
     Dosage: UNK
     Route: 065
  8. REMODULIN [Suspect]
     Active Substance: TREPROSTINIL
     Dosage: UNK UNK, CONTINUING
     Route: 058

REACTIONS (13)
  - Respiratory failure [Fatal]
  - Restrictive pulmonary disease [Fatal]
  - Depression [Unknown]
  - Malignant atrophic papulosis [Fatal]
  - Atrial flutter [Unknown]
  - Pleural effusion [Unknown]
  - Dependence on respirator [Unknown]
  - Pleural adhesion [Unknown]
  - Infarction [Unknown]
  - Dyspnoea [Unknown]
  - Pleurisy [Fatal]
  - Pericarditis constrictive [Unknown]
  - Off label use [Unknown]

NARRATIVE: CASE EVENT DATE: 201507
